FAERS Safety Report 9684090 (Version 2)
Quarter: 2014Q1

REPORT INFORMATION
  Report Type: Report from Study
  Country: US (occurrence: US)
  Receive Date: 20131112
  Receipt Date: 20140307
  Transmission Date: 20141002
  Serious: Yes (Hospitalization)
  Sender: FDA-Public Use
  Company Number: US-ACTELION-A-US2013-91058

PATIENT
  Age: 63 Year
  Sex: Female

DRUGS (2)
  1. VENTAVIS [Suspect]
     Indication: COR PULMONALE CHRONIC
     Dosage: UNK
     Route: 055
  2. SILDENAFIL [Concomitant]

REACTIONS (2)
  - Atrial fibrillation [Unknown]
  - Back injury [Unknown]
